FAERS Safety Report 8789429 (Version 1)
Quarter: 2012Q4

REPORT INFORMATION
  Report Type: Spontaneous
  Country: US (occurrence: None)
  Receive Date: 20120910
  Receipt Date: 20120910
  Transmission Date: 20130627
  Serious: Yes (Other)
  Sender: FDA-Public Use
  Company Number: None

PATIENT
  Age: 64 Year
  Sex: Female

DRUGS (2)
  1. HUMIRA 40 MG/ 0.8 ML PEN [Suspect]
     Route: 058
     Dates: start: 20110701, end: 20120930
  2. HUMIRA 40 MG/ 0.8 ML PEN [Suspect]
     Route: 058

REACTIONS (1)
  - Injection site pain [None]
